FAERS Safety Report 4653140-6 (Version None)
Quarter: 2005Q2

REPORT INFORMATION
  Report Type: 
  Country: None (occurrence: None)
  Receive Date: 20050505
  Receipt Date: 20050426
  Transmission Date: 20051028
  Serious: Yes (Hospitalization, Disabling)
  Sender: FDA-Public Use
  Company Number: JP-JNJFOC-20040204745

PATIENT
  Sex: Female
  Weight: 48.9 kg

DRUGS (8)
  1. REMICADE [Suspect]
     Route: 041
  2. REMICADE [Suspect]
     Route: 041
  3. REMICADE [Suspect]
     Indication: RHEUMATOID ARTHRITIS
     Route: 041
  4. RHEUMATREX [Concomitant]
     Route: 049
  5. RHEUMATREX [Concomitant]
     Indication: RHEUMATOID ARTHRITIS
     Route: 049
  6. LOXONIN [Concomitant]
     Indication: RHEUMATOID ARTHRITIS
     Dosage: DOSE 180 MG/WEEK
     Route: 065
  7. SELBEX [Concomitant]
     Dosage: DOSE 150MG/WEEK
     Route: 065
     Dates: end: 20040131
  8. PREDNISOLONE [Concomitant]
     Indication: RHEUMATOID ARTHRITIS
     Route: 065

REACTIONS (8)
  - ALANINE AMINOTRANSFERASE INCREASED [None]
  - ASPARTATE AMINOTRANSFERASE INCREASED [None]
  - ATROPHY [None]
  - BLOOD CREATINE PHOSPHOKINASE INCREASED [None]
  - DRUG INEFFECTIVE [None]
  - HEPATIC FUNCTION ABNORMAL [None]
  - INFLUENZA [None]
  - POLYMYOSITIS [None]
